FAERS Safety Report 9742505 (Version 1)
Quarter: 2013Q4

REPORT INFORMATION
  Report Type: Spontaneous
  Country: US (occurrence: US)
  Receive Date: 20131210
  Receipt Date: 20131210
  Transmission Date: 20140711
  Serious: Yes (Other)
  Sender: FDA-Public Use
  Company Number: US-SA-2013SA127525

PATIENT
  Age: 53 Year
  Sex: Female

DRUGS (6)
  1. PLAVIX [Suspect]
     Route: 065
  2. ENBREL [Suspect]
     Indication: RHEUMATOID ARTHRITIS
     Route: 065
     Dates: start: 20000301
  3. ENBREL [Suspect]
     Indication: RHEUMATOID ARTHRITIS
     Dosage: TWICE WEEKLY 25 MG
     Route: 065
     Dates: start: 201111
  4. ENBREL [Suspect]
     Indication: RHEUMATOID ARTHRITIS
     Dosage: TWICE WEEKLY 25 MG
     Route: 065
  5. METHOTREXATE [Suspect]
     Dosage: (2.5 MG, 8 TABLETS QWK
     Route: 065
  6. PREDNISONE [Concomitant]

REACTIONS (23)
  - Extremity contracture [Not Recovered/Not Resolved]
  - Joint destruction [Recovered/Resolved]
  - Arthropathy [Recovered/Resolved]
  - Foot operation [Recovered/Resolved]
  - Joint swelling [Recovering/Resolving]
  - Arthralgia [Recovering/Resolving]
  - Bursitis [Not Recovered/Not Resolved]
  - Hand deformity [Not Recovered/Not Resolved]
  - Foot deformity [Not Recovered/Not Resolved]
  - Condition aggravated [Recovered/Resolved]
  - Arthritis [Not Recovered/Not Resolved]
  - Stomatitis [Recovered/Resolved]
  - Chapped lips [Not Recovered/Not Resolved]
  - Pain in extremity [Not Recovered/Not Resolved]
  - Oedema peripheral [Recovered/Resolved]
  - Gait disturbance [Unknown]
  - Musculoskeletal stiffness [Not Recovered/Not Resolved]
  - Fatigue [Not Recovered/Not Resolved]
  - Contusion [Unknown]
  - Diarrhoea [Recovered/Resolved]
  - Injection site pain [Not Recovered/Not Resolved]
  - Injection site bruising [Not Recovered/Not Resolved]
  - Drug effect decreased [Recovered/Resolved]
